FAERS Safety Report 5147335-5 (Version None)
Quarter: 2006Q4

REPORT INFORMATION
  Report Type: 
  Country: None (occurrence: None)
  Receive Date: 20061103
  Receipt Date: 20061023
  Transmission Date: 20070319
  Serious: Yes (Hospitalization, Other)
  Sender: FDA-Public Use
  Company Number: 2006BI011266

PATIENT
  Age: 42 Year
  Sex: Male

DRUGS (9)
  1. AVONEX [Suspect]
     Indication: MULTIPLE SCLEROSIS
     Dosage: 30 UG;QW;IM
     Route: 030
     Dates: start: 20060626
  2. SIMVASTATIN [Concomitant]
  3. BACLOFEN [Concomitant]
  4. DOXAZOSIN MESYLATE [Concomitant]
  5. DEPAKOTE [Concomitant]
  6. FLUOXETINE [Concomitant]
  7. HYDROCHLOROTHIAZIDE [Concomitant]
  8. OMEPRAZOLE [Concomitant]
  9. GEMFIBROZIL [Concomitant]

REACTIONS (2)
  - CONVERSION DISORDER [None]
  - CONVULSION [None]
